FAERS Safety Report 4761683-X (Version None)
Quarter: 2005Q3

REPORT INFORMATION
  Report Type: 
  Country: None (occurrence: None)
  Receive Date: 20050906
  Receipt Date: 20050726
  Transmission Date: 20060218
  Serious: Yes (Hospitalization)
  Sender: FDA-Public Use
  Company Number: PHBS2005JP10937

PATIENT
  Age: 40 Year
  Sex: 0

DRUGS (6)
  1. DIOVAN [Suspect]
     Dosage: 80 MG/DAY
     Route: 048
     Dates: start: 20050711
  2. COTRIM [Concomitant]
     Dosage: UNK, UNK
     Route: 048
     Dates: start: 20050716
  3. PARIET [Concomitant]
     Dosage: 10 MG/DAY
     Route: 048
     Dates: start: 20050716
  4. ALLOID [Concomitant]
     Dosage: 60 ML/DAY
     Route: 048
     Dates: start: 20050716
  5. ALLOID [Concomitant]
     Route: 048
  6. PREDONINE [Concomitant]
     Route: 048
     Dates: start: 20050716

REACTIONS (2)
  - BLOOD CHOLESTEROL INCREASED [None]
  - NEPHROTIC SYNDROME [None]
